FAERS Safety Report 21271642 (Version 1)
Quarter: 2022Q3

REPORT INFORMATION
  Report Type: Spontaneous
  Country: GB (occurrence: GB)
  Receive Date: 20220830
  Receipt Date: 20220830
  Transmission Date: 20221027
  Serious: Yes (Other)
  Sender: FDA-Public Use
  Company Number: GB-SA-SAC20220829001281

PATIENT
  Age: 64 Year
  Sex: Male

DRUGS (1)
  1. LIBTAYO [Suspect]
     Active Substance: CEMIPLIMAB-RWLC
     Indication: Product used for unknown indication
     Dosage: UNK
     Route: 065

REACTIONS (6)
  - Skin squamous cell carcinoma recurrent [Unknown]
  - Squamous cell carcinoma of skin [Unknown]
  - Lymphadenopathy [Unknown]
  - Neck dissection [Unknown]
  - Parotidectomy [Unknown]
  - Radiotherapy [Unknown]

NARRATIVE: CASE EVENT DATE: 20211112
